FAERS Safety Report 20997765 (Version 2)
Quarter: 2022Q2

REPORT INFORMATION
  Report Type: Spontaneous
  Country: US (occurrence: US)
  Receive Date: 20220623
  Receipt Date: 20220627
  Transmission Date: 20220721
  Serious: Yes (Hospitalization, Other)
  Sender: FDA-Public Use
  Company Number: US-BIXINK INC.-2022-PUM-US000994

PATIENT

DRUGS (2)
  1. NERLYNX [Suspect]
     Active Substance: NERATINIB
     Indication: EGFR gene mutation
     Dosage: UNK
     Route: 065
     Dates: start: 20210721
  2. NERLYNX [Suspect]
     Active Substance: NERATINIB
     Indication: Non-small cell lung cancer

REACTIONS (4)
  - Malignant neoplasm progression [Recovering/Resolving]
  - Seizure [Unknown]
  - Lung cancer metastatic [Unknown]
  - Off label use [Unknown]

NARRATIVE: CASE EVENT DATE: 20220330
